FAERS Safety Report 4622813-3 (Version None)
Quarter: 2005Q1

REPORT INFORMATION
  Report Type: 
  Country: None (occurrence: None)
  Receive Date: 20050328
  Receipt Date: 20050328
  Transmission Date: 20050727
  Serious: Yes (Other)
  Sender: FDA-Public Use
  Company Number: None

PATIENT
  Age: 83 Year
  Sex: Female

DRUGS (10)
  1. DARBEPOETIN [Suspect]
     Dosage: 100 MCG  EVERY WEEK
  2. HUMULIN N [Concomitant]
  3. METOPROLOL TARTRATE [Concomitant]
  4. TIMOPTIC [Concomitant]
  5. PHOSLO [Concomitant]
  6. TRAZODONE HCL [Concomitant]
  7. EFFEXOR [Concomitant]
  8. FERROUS SULFATE TAB [Concomitant]
  9. PROTONIX [Concomitant]
  10. LASIX [Concomitant]

REACTIONS (3)
  - HAEMATOCRIT INCREASED [None]
  - HYPERVISCOSITY SYNDROME [None]
  - RENAL IMPAIRMENT [None]
